FAERS Safety Report 7027744-X (Version None)
Quarter: 2010Q4

REPORT INFORMATION
  Report Type: 
  Country: None (occurrence: None)
  Receive Date: 20101004
  Receipt Date: 20100929
  Transmission Date: 20110411
  Serious: Yes (Hospitalization)
  Sender: FDA-Public Use
  Company Number: JP-BRISTOL-MYERS SQUIBB COMPANY-15314149

PATIENT
  Age: 57 Year
  Sex: Female

DRUGS (2)
  1. IRBETAN [Suspect]
     Indication: HYPERTENSION
     Dosage: DOSE:02NOV-10NOV09:50MG,INCREASED FROM 11NOV09-23MAR10,100MG.
     Route: 048
     Dates: start: 20091102, end: 20100323
  2. BOUFUUTSUUSHOUSAN [Suspect]
     Dates: start: 20091124, end: 20100226

REACTIONS (1)
  - ATRIOVENTRICULAR BLOCK SECOND DEGREE [None]
